FAERS Safety Report 5000729-0 (Version None)
Quarter: 2006Q2

REPORT INFORMATION
  Report Type: 
  Country: None (occurrence: None)
  Receive Date: 20060512
  Receipt Date: 20060503
  Transmission Date: 20061013
  Serious: Yes (Other)
  Sender: FDA-Public Use
  Company Number: PHBS2006US06705

PATIENT
  Age: 32 Year
  Sex: Male

DRUGS (5)
  1. PREDNISONE TAB [Suspect]
     Indication: RENAL TRANSPLANT
     Dosage: 30 MG/D
     Route: 065
  2. HYDROCHLOROTHIAZIDE [Concomitant]
     Dosage: 100 MG/D
  3. CLONIDINE [Concomitant]
     Dosage: 0.4 MG/D
  4. NADOLOL [Concomitant]
  5. CYCLOSPORINE [Suspect]
     Indication: RENAL TRANSPLANT
     Dosage: 230 MG/D
     Route: 065

REACTIONS (1)
  - CHORIORETINOPATHY [None]
